FAERS Safety Report 7897353-9 (Version None)
Quarter: 2011Q4

REPORT INFORMATION
  Report Type: 
  Country: None (occurrence: None)
  Receive Date: 20111107
  Receipt Date: 20111024
  Transmission Date: 20120403
  Serious: Yes (Hospitalization)
  Sender: FDA-Public Use
  Company Number: PHHO2011FR17108

PATIENT
  Sex: Male
  Weight: 72 kg

DRUGS (4)
  1. RAD 666 / RAD 001A [Suspect]
     Indication: RENAL TRANSPLANT
     Dosage: 1.5 MG, UNK
     Route: 048
     Dates: start: 20110924, end: 20111003
  2. NEORAL [Suspect]
     Indication: RENAL TRANSPLANT
     Dosage: 750 + 150MG
     Route: 048
     Dates: start: 20111007
  3. MYCOPHENOLATE MOFETIL (CELLCEPT) [Suspect]
     Indication: RENAL TRANSPLANT
     Dosage: 750 MG, BID
     Route: 048
     Dates: start: 20110919
  4. PREDNISONE [Suspect]
     Indication: RENAL TRANSPLANT
     Dosage: 20 MG, UNK
     Route: 048
     Dates: start: 20110925

REACTIONS (3)
  - INFLAMMATION OF WOUND [None]
  - BLOOD CREATININE INCREASED [None]
  - PANCYTOPENIA [None]
